FAERS Safety Report 7342490-0 (Version None)
Quarter: 2011Q1

REPORT INFORMATION
  Report Type: 
  Country: None (occurrence: None)
  Receive Date: 20110310
  Receipt Date: 20110307
  Transmission Date: 20110831
  Serious: No
  Sender: FDA-Public Use
  Company Number: US-PFIZER INC-2011049819

PATIENT
  Sex: Male

DRUGS (3)
  1. DILANTIN [Suspect]
     Dosage: 100 MG, UNK
     Route: 048
     Dates: start: 20090401
  2. ZOLPIDEM [Concomitant]
     Dosage: 10 MG, UNK
  3. SIMVASTATIN [Concomitant]
     Dosage: 20 MG, UNK

REACTIONS (1)
  - DYSGEUSIA [None]
